FAERS Safety Report 5595904-0 (Version None)
Quarter: 2008Q1

REPORT INFORMATION
  Report Type: 
  Country: None (occurrence: None)
  Receive Date: 20080118
  Receipt Date: 20080111
  Transmission Date: 20080703
  Serious: Yes (Other)
  Sender: FDA-Public Use
  Company Number: HQWYE460627JUL04

PATIENT
  Sex: Female

DRUGS (3)
  1. PREMPRO [Suspect]
  2. MEDROXYPROGESTERONE ACETATE [Suspect]
  3. CONJUGATED ESTROGENS [Suspect]

REACTIONS (1)
  - CONTRALATERAL BREAST CANCER [None]
